FAERS Safety Report 23152480 (Version 2)
Quarter: 2025Q2

REPORT INFORMATION
  Report Type: Spontaneous
  Country: FR (occurrence: FR)
  Receive Date: 20231107
  Receipt Date: 20250503
  Transmission Date: 20250717
  Serious: Yes (Hospitalization, Other)
  Sender: AUROBINDO
  Company Number: FR-AUROBINDO-AUR-APL-2023-066873

PATIENT
  Age: 55 Year
  Sex: Female

DRUGS (2)
  1. AMOXICILLIN [Suspect]
     Active Substance: AMOXICILLIN
     Indication: Enterococcal infection
     Dosage: 12 GRAM, ONCE A DAY
     Route: 042
  2. CEFTRIAXONE [Concomitant]
     Active Substance: CEFTRIAXONE
     Indication: Enterococcal infection
     Dosage: 4 GRAM, ONCE A DAY
     Route: 065

REACTIONS (2)
  - Nephropathy [Unknown]
  - Acute kidney injury [Unknown]
